FAERS Safety Report 7235431-8 (Version None)
Quarter: 2011Q1

REPORT INFORMATION
  Report Type: 
  Country: None (occurrence: None)
  Receive Date: 20110120
  Receipt Date: 20110105
  Transmission Date: 20110831
  Serious: Yes (Hospitalization, Other)
  Sender: FDA-Public Use
  Company Number: US-BIOGENIDEC-2010BI028389

PATIENT
  Age: 60 Year
  Sex: Female
  Weight: 56 kg

DRUGS (23)
  1. TYSABRI [Suspect]
     Indication: MULTIPLE SCLEROSIS
     Route: 042
     Dates: start: 20070920, end: 20100806
  2. ALPRAZOLAM [Concomitant]
     Indication: ANXIETY
     Route: 048
     Dates: start: 20100831, end: 20101024
  3. BACLOFEN [Concomitant]
     Dates: start: 20101103
  4. AVONEX [Concomitant]
     Indication: MULTIPLE SCLEROSIS
     Route: 030
     Dates: start: 20010409
  5. LORCET-HD [Concomitant]
     Indication: PAIN
     Dates: start: 20100830, end: 20101023
  6. LUNESTA [Concomitant]
  7. CYMBALTA [Concomitant]
     Indication: PAIN
     Route: 048
     Dates: start: 20100825
  8. FENTANYL-100 [Concomitant]
     Indication: PAIN
  9. EFFEXOR [Concomitant]
     Dates: start: 20101103
  10. VERAPAMIL EXTENDED-RELEASE [Concomitant]
  11. PREMPRO [Concomitant]
  12. CYMBALTA [Concomitant]
     Indication: DEPRESSION
     Route: 048
     Dates: start: 20100825
  13. FENTANYL-100 [Concomitant]
     Route: 061
     Dates: start: 20100923
  14. BENICAR [Concomitant]
     Indication: HYPERTENSION
     Route: 048
     Dates: start: 20100826
  15. ENABLEX [Concomitant]
  16. TYLENOL [Concomitant]
  17. LYRICA [Concomitant]
  18. BACLOFEN [Concomitant]
     Indication: MUSCLE SPASTICITY
     Route: 048
     Dates: start: 20101014, end: 20101020
  19. CALCIUM [Concomitant]
  20. RESTORIL [Concomitant]
  21. PROVIGIL [Concomitant]
  22. VITAMIN D [Concomitant]
  23. ALPRAZOLAM [Concomitant]
     Route: 048
     Dates: start: 20101103

REACTIONS (4)
  - PROGRESSIVE MULTIFOCAL LEUKOENCEPHALOPATHY [None]
  - GRAND MAL CONVULSION [None]
  - PNEUMONIA ASPIRATION [None]
  - URINARY TRACT INFECTION [None]
